FAERS Safety Report 16098361 (Version 1)
Quarter: 2019Q1

REPORT INFORMATION
  Report Type: Spontaneous
  Country: US (occurrence: US)
  Receive Date: 20190321
  Receipt Date: 20190321
  Transmission Date: 20190418
  Serious: No
  Sender: FDA-Public Use
  Company Number: US-TEVA-2019-US-1016854

PATIENT
  Sex: Male

DRUGS (2)
  1. BUPRENORPHINE ACTAVIS [Suspect]
     Active Substance: BUPRENORPHINE
     Indication: DRUG DEPENDENCE
  2. BUPRENORPHINE ACTAVIS [Suspect]
     Active Substance: BUPRENORPHINE
     Indication: PAIN
     Route: 060

REACTIONS (9)
  - Drug ineffective [Unknown]
  - Product substitution issue [Unknown]
  - Insomnia [Unknown]
  - Withdrawal syndrome [Unknown]
  - Restless legs syndrome [Unknown]
  - Feeling abnormal [Unknown]
  - Vomiting [Unknown]
  - Tremor [Unknown]
  - Anal incontinence [Unknown]

NARRATIVE: CASE EVENT DATE: 201902
